FAERS Safety Report 24222870 (Version 2)
Quarter: 2024Q4

REPORT INFORMATION
  Report Type: Spontaneous
  Country: GB (occurrence: GB)
  Receive Date: 20240819
  Receipt Date: 20241008
  Transmission Date: 20250114
  Serious: Yes (Hospitalization, Disabling, Other)
  Sender: PFIZER
  Company Number: GB-009507513-2408GBR003710

PATIENT
  Age: 37 Year
  Sex: Female

DRUGS (3)
  1. CARBOPLATIN [Suspect]
     Active Substance: CARBOPLATIN
     Indication: Triple negative breast cancer
     Dosage: UNK
     Dates: start: 20240320, end: 20240603
  2. PACLITAXEL [Suspect]
     Active Substance: PACLITAXEL
     Indication: Triple negative breast cancer
     Dosage: UNK
     Dates: start: 20240320, end: 20240603
  3. KEYTRUDA [Suspect]
     Active Substance: PEMBROLIZUMAB
     Indication: Triple negative breast cancer
     Dosage: 200 MG 3X/WEEK
     Dates: end: 2024

REACTIONS (2)
  - Immune-mediated myositis [Recovering/Resolving]
  - Off label use [Unknown]

NARRATIVE: CASE EVENT DATE: 20240101
